FAERS Safety Report 20707729 (Version 1)
Quarter: 2022Q2

REPORT INFORMATION
  Report Type: Spontaneous
  Country: FR (occurrence: FR)
  Receive Date: 20220413
  Receipt Date: 20220413
  Transmission Date: 20220720
  Serious: Yes (Other)
  Sender: FDA-Public Use
  Company Number: FR-AFSSAPS-AVNT20220227

PATIENT
  Age: 78 Year
  Sex: Male

DRUGS (2)
  1. ACETAMINOPHEN [Suspect]
     Active Substance: ACETAMINOPHEN
     Indication: Product used for unknown indication
     Dosage: UNK (4 CPS DE  37.5 MG DE TRAMADOL, 325 MG DE PARAC?TAMOL)
     Route: 048
  2. TRAMADOL [Suspect]
     Active Substance: TRAMADOL
     Indication: Product used for unknown indication
     Dosage: UNK (4 CPS DE  37.5 MG DE TRAMADOL, 325 MG DE PARAC?TAMOL)
     Route: 048

REACTIONS (1)
  - Drug use disorder [Not Recovered/Not Resolved]
